FAERS Safety Report 13747206 (Version 1)
Quarter: 2017Q3

REPORT INFORMATION
  Report Type: Spontaneous
  Country: US (occurrence: US)
  Receive Date: 20170712
  Receipt Date: 20170712
  Transmission Date: 20171127
  Serious: Yes (Hospitalization)
  Sender: FDA-Public Use
  Company Number: US-JNJFOC-20170705051

PATIENT
  Sex: Male
  Weight: 72.58 kg

DRUGS (2)
  1. RISPERDAL [Suspect]
     Active Substance: RISPERIDONE
     Indication: BIPOLAR DISORDER
     Route: 065
     Dates: start: 2015, end: 2015
  2. RISPERDAL [Suspect]
     Active Substance: RISPERIDONE
     Indication: SCHIZOPHRENIA
     Route: 065
     Dates: start: 2015, end: 2015

REACTIONS (7)
  - Decreased appetite [Unknown]
  - Unevaluable event [Recovered/Resolved]
  - Weight increased [Not Recovered/Not Resolved]
  - Sexual dysfunction [Recovered/Resolved]
  - Suicidal ideation [Recovered/Resolved]
  - Exercise tolerance decreased [Recovered/Resolved]
  - Asthenia [Recovered/Resolved]

NARRATIVE: CASE EVENT DATE: 2015
